FAERS Safety Report 25027612 (Version 2)
Quarter: 2025Q2

REPORT INFORMATION
  Report Type: Spontaneous
  Country: US (occurrence: US)
  Receive Date: 20250301
  Receipt Date: 20250418
  Transmission Date: 20250717
  Serious: No
  Sender: SANOFI AVENTIS
  Company Number: US-SA-2025SA059515

PATIENT
  Age: 36 Year
  Sex: Male

DRUGS (2)
  1. DUPIXENT [Suspect]
     Active Substance: DUPILUMAB
     Indication: Dermatitis atopic
     Dosage: 300 MG, QOW
     Route: 058
     Dates: start: 202502
  2. CLOBETASOL [Concomitant]
     Active Substance: CLOBETASOL

REACTIONS (5)
  - Pain [Unknown]
  - Sleep disorder due to a general medical condition [Not Recovered/Not Resolved]
  - Vision blurred [Not Recovered/Not Resolved]
  - Nasopharyngitis [Not Recovered/Not Resolved]
  - Conjunctivitis [Unknown]

NARRATIVE: CASE EVENT DATE: 20250101
